FAERS Safety Report 8093114-9 (Version None)
Quarter: 2012Q1

REPORT INFORMATION
  Report Type: 
  Country: None (occurrence: None)
  Receive Date: 20120128
  Receipt Date: 20111025
  Transmission Date: 20120608
  Serious: Yes (Other)
  Sender: FDA-Public Use
  Company Number: US-ABBOTT-11P-163-0850203-00

PATIENT
  Sex: Female

DRUGS (4)
  1. HUMIRA [Suspect]
  2. OTC HYDROCORTISONE [Concomitant]
     Indication: PRODUCT USED FOR UNKNOWN INDICATION
     Dosage: ALL OVER BODY ONCE A DAY AFTER SHOWER
     Dates: start: 20110601
  3. HUMIRA [Suspect]
     Indication: PSORIASIS
     Dates: start: 20090801, end: 20110101
  4. LIPITOR [Concomitant]
     Indication: BLOOD CHOLESTEROL INCREASED
     Dosage: ONE PILL EVERY DAY

REACTIONS (1)
  - ENDOMETRIAL CANCER [None]
